FAERS Safety Report 20042871 (Version 2)
Quarter: 2024Q3

REPORT INFORMATION
  Report Type: Report from Study
  Country: US (occurrence: US)
  Receive Date: 20211108
  Receipt Date: 20240830
  Transmission Date: 20241016
  Serious: Yes (Hospitalization)
  Sender: ROCHE
  Company Number: US-ROCHE-2903397

PATIENT
  Age: 77 Year
  Sex: Male

DRUGS (22)
  1. AVASTIN [Suspect]
     Active Substance: BEVACIZUMAB
     Indication: Gastrointestinal angiodysplasia
     Route: 042
  2. AVASTIN [Suspect]
     Active Substance: BEVACIZUMAB
     Indication: Hereditary haemorrhagic telangiectasia
     Route: 042
  3. AVASTIN [Suspect]
     Active Substance: BEVACIZUMAB
     Indication: Iron deficiency anaemia
  4. AVASTIN [Suspect]
     Active Substance: BEVACIZUMAB
     Indication: Gastrointestinal vascular malformation haemorrhagic
  5. AVASTIN [Suspect]
     Active Substance: BEVACIZUMAB
     Indication: Epistaxis
  6. ALBUTEROL [Concomitant]
     Active Substance: ALBUTEROL
  7. LIPITOR [Concomitant]
     Active Substance: ATORVASTATIN CALCIUM
  8. ZEBETA [Concomitant]
     Active Substance: BISOPROLOL FUMARATE
  9. SYMBICORT [Concomitant]
     Active Substance: BUDESONIDE\FORMOTEROL FUMARATE DIHYDRATE
  10. FUROSEMIDE [Concomitant]
     Active Substance: FUROSEMIDE
  11. LISINOPRIL [Concomitant]
     Active Substance: LISINOPRIL
  12. MAGNESIUM OXIDE [Concomitant]
     Active Substance: MAGNESIUM OXIDE
  13. PRILOSEC [Concomitant]
     Active Substance: OMEPRAZOLE MAGNESIUM
  14. AFRIN [Concomitant]
     Active Substance: OXYMETAZOLINE
  15. MYSOLINE [Concomitant]
     Active Substance: PRIMIDONE
  16. ALDACTONE [Concomitant]
     Active Substance: SPIRONOLACTONE
  17. FLOMAX [Concomitant]
     Active Substance: TAMSULOSIN HYDROCHLORIDE
  18. SPIRIVA [Concomitant]
     Active Substance: TIOTROPIUM BROMIDE MONOHYDRATE
  19. VITAMIN C [Concomitant]
     Active Substance: ASCORBIC ACID
  20. VITAMIN E [Concomitant]
     Active Substance: .ALPHA.-TOCOPHEROL
  21. ZINC [Concomitant]
     Active Substance: ZINC
  22. COPPER [Concomitant]
     Active Substance: COPPER

REACTIONS (2)
  - Off label use [Unknown]
  - Infection [Unknown]
